FAERS Safety Report 10004500 (Version 1)
Quarter: 2014Q1

REPORT INFORMATION
  Report Type: Spontaneous
  Country: FR (occurrence: FR)
  Receive Date: 20140312
  Receipt Date: 20140312
  Transmission Date: 20141002
  Serious: Yes (Hospitalization, Other)
  Sender: FDA-Public Use
  Company Number: FR-PFIZER INC-2014069364

PATIENT
  Age: 64 Year
  Sex: Female

DRUGS (5)
  1. SOLU-MEDROL [Suspect]
     Indication: PROGRESSIVE MULTIPLE SCLEROSIS
     Dosage: UNSPECIFIED DOSE CYCLIC
     Route: 040
     Dates: start: 201309
  2. SOLU-MEDROL [Suspect]
     Dosage: UNSPECIFIED DOSE CYCLIC
     Route: 040
     Dates: start: 20131120, end: 20131122
  3. DEROXAT [Concomitant]
     Dosage: UNK
  4. APROVEL [Concomitant]
     Dosage: UNK
  5. TARDYFERON [Concomitant]
     Dosage: UNK

REACTIONS (2)
  - Mania [Recovered/Resolved]
  - Mobility decreased [Recovered/Resolved]
